FAERS Safety Report 12770403 (Version 26)
Quarter: 2022Q1

REPORT INFORMATION
  Report Type: Other
  Country: CA (occurrence: CA)
  Receive Date: 20160922
  Receipt Date: 20220112
  Transmission Date: 20220423
  Serious: Yes (Hospitalization, Other)
  Sender: FDA-Public Use
  Company Number: CA-002147023-PHHY2016CA129197

PATIENT
  Age: 15 Year
  Sex: Male

DRUGS (21)
  1. XOLAIR [Suspect]
     Active Substance: OMALIZUMAB
     Indication: Asthma
     Route: 058
     Dates: start: 20150216
  2. XOLAIR [Suspect]
     Active Substance: OMALIZUMAB
     Route: 058
     Dates: start: 20160907
  3. XOLAIR [Suspect]
     Active Substance: OMALIZUMAB
     Route: 058
     Dates: start: 2017
  4. XOLAIR [Suspect]
     Active Substance: OMALIZUMAB
     Route: 058
     Dates: start: 20180228
  5. XOLAIR [Suspect]
     Active Substance: OMALIZUMAB
     Route: 058
     Dates: start: 20180425
  6. XOLAIR [Suspect]
     Active Substance: OMALIZUMAB
     Route: 058
     Dates: start: 20180717
  7. XOLAIR [Suspect]
     Active Substance: OMALIZUMAB
     Route: 058
     Dates: start: 20180814
  8. XOLAIR [Suspect]
     Active Substance: OMALIZUMAB
     Route: 058
     Dates: start: 20180911
  9. XOLAIR [Suspect]
     Active Substance: OMALIZUMAB
     Route: 058
     Dates: start: 20181219
  10. XOLAIR [Suspect]
     Active Substance: OMALIZUMAB
     Route: 058
     Dates: start: 20190212
  11. XOLAIR [Suspect]
     Active Substance: OMALIZUMAB
     Route: 058
     Dates: start: 20190422
  12. XOLAIR [Suspect]
     Active Substance: OMALIZUMAB
     Route: 058
     Dates: start: 20190729
  13. XOLAIR [Suspect]
     Active Substance: OMALIZUMAB
     Route: 058
     Dates: start: 20191009
  14. XOLAIR [Suspect]
     Active Substance: OMALIZUMAB
     Route: 058
     Dates: start: 20191023
  15. XOLAIR [Suspect]
     Active Substance: OMALIZUMAB
     Route: 058
     Dates: start: 20191111
  16. XOLAIR [Suspect]
     Active Substance: OMALIZUMAB
     Route: 058
     Dates: start: 20191122
  17. VENTOLIN [Concomitant]
     Active Substance: ALBUTEROL SULFATE
     Indication: Product used for unknown indication
     Dosage: (VENTOLIN PUMPS)
     Route: 065
  18. DECADRON [Concomitant]
     Active Substance: DEXAMETHASONE
     Indication: Product used for unknown indication
     Route: 048
  19. ZENHALE [Concomitant]
     Active Substance: FORMOTEROL FUMARATE\MOMETASONE FUROATE
     Indication: Product used for unknown indication
     Route: 065
  20. ZENHALE [Concomitant]
     Active Substance: FORMOTEROL FUMARATE\MOMETASONE FUROATE
     Dosage: DOSE INCREASED
     Route: 055
     Dates: start: 20180911
  21. SINGULAIR [Concomitant]
     Active Substance: MONTELUKAST SODIUM
     Indication: Product used for unknown indication
     Dosage: (AT BED TIME)
     Route: 065

REACTIONS (49)
  - Bronchospasm [Unknown]
  - Pneumonia [Unknown]
  - Dyspnoea [Not Recovered/Not Resolved]
  - Secretion discharge [Unknown]
  - Chest discomfort [Unknown]
  - Muscle tightness [Unknown]
  - Asthma [Recovering/Resolving]
  - Pneumonia viral [Unknown]
  - Weight increased [Unknown]
  - Productive cough [Recovered/Resolved]
  - Rhinorrhoea [Recovered/Resolved]
  - General physical health deterioration [Not Recovered/Not Resolved]
  - Crepitations [Unknown]
  - Throat clearing [Unknown]
  - Increased bronchial secretion [Unknown]
  - Viral upper respiratory tract infection [Recovered/Resolved]
  - Sputum discoloured [Unknown]
  - Pyrexia [Unknown]
  - Temperature intolerance [Unknown]
  - Nasal congestion [Unknown]
  - Use of accessory respiratory muscles [Not Recovered/Not Resolved]
  - Ligament sprain [Unknown]
  - Influenza [Unknown]
  - Back pain [Unknown]
  - Contusion [Unknown]
  - Wheezing [Unknown]
  - Erythema [Unknown]
  - Acne [Unknown]
  - Nasal discharge discolouration [Recovered/Resolved]
  - Fungal infection [Unknown]
  - Tinea infection [Not Recovered/Not Resolved]
  - Humidity intolerance [Unknown]
  - Hypersensitivity [Unknown]
  - Forced expiratory volume decreased [Unknown]
  - Feeling abnormal [Unknown]
  - Skin lesion [Unknown]
  - Body temperature decreased [Unknown]
  - Pain [Unknown]
  - Anaemia [Unknown]
  - Oral candidiasis [Unknown]
  - Forearm fracture [Unknown]
  - Fall [Unknown]
  - Cough [Unknown]
  - Middle insomnia [Not Recovered/Not Resolved]
  - Injection site pain [Unknown]
  - Nasopharyngitis [Unknown]
  - Fatigue [Not Recovered/Not Resolved]
  - Influenza like illness [Unknown]
  - Headache [Unknown]

NARRATIVE: CASE EVENT DATE: 20160901
